FAERS Safety Report 4702468-X (Version None)
Quarter: 2005Q2

REPORT INFORMATION
  Report Type: 
  Country: None (occurrence: None)
  Receive Date: 20050629
  Receipt Date: 20010827
  Transmission Date: 20051028
  Serious: Yes (Hospitalization)
  Sender: FDA-Public Use
  Company Number: 10969723

PATIENT
  Age: 24 Hour
  Sex: Male
  Weight: 3 kg

DRUGS (7)
  1. ZERIT [Suspect]
     Route: 064
  2. ZERIT [Suspect]
     Route: 048
     Dates: start: 20001016, end: 20001130
  3. EPIVIR [Suspect]
     Route: 064
  4. RETROVIR [Suspect]
     Route: 064
  5. SPASFON [Concomitant]
     Route: 064
  6. IRON [Concomitant]
     Route: 064
  7. VITAMINS [Concomitant]
     Route: 064

REACTIONS (5)
  - ANAEMIA [None]
  - BLOOD LACTIC ACID INCREASED [None]
  - NEUTROPENIA [None]
  - RESTLESSNESS [None]
  - SPEECH DISORDER [None]
